FAERS Safety Report 7674238-4 (Version None)
Quarter: 2011Q3

REPORT INFORMATION
  Report Type: 
  Country: None (occurrence: None)
  Receive Date: 20110810
  Receipt Date: 20110801
  Transmission Date: 20111222
  Serious: Yes (Hospitalization, Other)
  Sender: FDA-Public Use
  Company Number: US-ELI_LILLY_AND_COMPANY-US200811004925

PATIENT
  Sex: Male

DRUGS (14)
  1. BYETTA [Suspect]
     Dosage: 10 UG, UNKNOWN
     Route: 058
     Dates: start: 20080915, end: 20080917
  2. AMLODIPINE [Concomitant]
     Indication: BLOOD PRESSURE
     Dosage: UNK, UNKNOWN
  3. PRIMIDONE [Concomitant]
     Indication: TREMOR
     Dosage: 250 MG, UNKNOWN
  4. PROVIGIL [Concomitant]
     Dosage: 200 MG, UNKNOWN
  5. BYETTA [Suspect]
     Indication: TYPE 2 DIABETES MELLITUS
     Dosage: 5 UG, UNKNOWN
     Route: 058
     Dates: start: 20080801, end: 20080914
  6. METFORMIN HCL [Concomitant]
     Dosage: 500 MG, UNKNOWN
  7. PRILOSEC [Concomitant]
     Dosage: UNK, UNKNOWN
  8. ACTOS [Concomitant]
     Dosage: 45 MG, UNKNOWN
  9. SIMVASTATIN [Concomitant]
     Dosage: UNK, UNKNOWN
  10. GLIMEPIRIDE [Concomitant]
     Dosage: 5 MG, 2/D
  11. HYDROCHLOROTHIAZIDE [Concomitant]
     Dosage: 25 MG, UNKNOWN
  12. SERTRALINE HYDROCHLORIDE [Concomitant]
     Dosage: 100 MG, UNKNOWN
  13. BENAZEPRIL HYDROCHLORIDE [Concomitant]
     Indication: BLOOD PRESSURE
     Dosage: 20 MG, UNKNOWN
  14. LUMIGAN [Concomitant]
     Dosage: UNK, UNKNOWN

REACTIONS (2)
  - PANCREATITIS [None]
  - INFLAMMATION [None]
